FAERS Safety Report 24963310 (Version 1)
Quarter: 2025Q1

REPORT INFORMATION
  Report Type: Report from Study
  Country: US (occurrence: US)
  Receive Date: 20250213
  Receipt Date: 20250213
  Transmission Date: 20250408
  Serious: No
  Sender: ROCHE
  Company Number: US-ROCHE-10000202123

PATIENT
  Age: 51 Year
  Sex: Female

DRUGS (8)
  1. OCREVUS [Suspect]
     Active Substance: OCRELIZUMAB
     Indication: Relapsing multiple sclerosis
     Route: 042
  2. KLONOPIN [Suspect]
     Active Substance: CLONAZEPAM
     Indication: Muscle spasms
     Route: 048
  3. SOMA [Concomitant]
     Active Substance: CARISOPRODOL
     Route: 048
  4. VITAMIN D3 [Concomitant]
     Active Substance: CHOLECALCIFEROL
  5. FLEXERIL [Concomitant]
     Active Substance: CYCLOBENZAPRINE HYDROCHLORIDE
  6. ZETIA [Concomitant]
     Active Substance: EZETIMIBE
  7. TRILEPTAL [Concomitant]
     Active Substance: OXCARBAZEPINE
  8. ELAVIL [Concomitant]
     Active Substance: AMITRIPTYLINE HYDROCHLORIDE

REACTIONS (13)
  - Neuralgia [Unknown]
  - Muscle spasms [Unknown]
  - Electric shock sensation [Unknown]
  - COVID-19 [Unknown]
  - Nausea [Unknown]
  - Somnolence [Unknown]
  - Headache [Unknown]
  - Pain [Unknown]
  - Asthenia [Unknown]
  - Arthralgia [Unknown]
  - Myalgia [Unknown]
  - Nervousness [Unknown]
  - Anxiety [Unknown]
